FAERS Safety Report 9413368 (Version 1)
Quarter: 2013Q3

REPORT INFORMATION
  Report Type: Report from Study
  Country: FR (occurrence: FR)
  Receive Date: 20130722
  Receipt Date: 20130722
  Transmission Date: 20140515
  Serious: Yes (Other)
  Sender: FDA-Public Use
  Company Number: FR-ROCHE-1247756

PATIENT
  Age: 55 Year
  Sex: Male
  Weight: 97.5 kg

DRUGS (10)
  1. BEVACIZUMAB [Suspect]
     Indication: NON-SMALL CELL LUNG CANCER RECURRENT
     Dosage: MOST RECENT DOSE PRIOR TO SAE: 03/JUL/2013
     Route: 042
     Dates: start: 20130123
  2. PACLITAXEL [Suspect]
     Indication: NON-SMALL CELL LUNG CANCER RECURRENT
     Dosage: MOST RECENT DOSE PRIOR TO SAE: 03/APR/2013
     Route: 042
     Dates: start: 20130123
  3. CARBOPLATIN [Suspect]
     Indication: NON-SMALL CELL LUNG CANCER RECURRENT
     Dosage: MOST RECENT DOSE PRIOR TO SAE: 03/APR/2013
     Route: 042
     Dates: start: 20130123
  4. FORLAX (FRANCE) [Concomitant]
     Indication: CONSTIPATION
     Route: 048
     Dates: start: 20130123
  5. PARACETAMOL [Concomitant]
     Indication: BACK PAIN
     Route: 048
     Dates: start: 20130123
  6. MYOLASTAN [Concomitant]
     Indication: BACK PAIN
     Route: 065
     Dates: start: 20130130
  7. SKENAN [Concomitant]
     Indication: BACK PAIN
     Route: 048
     Dates: start: 20130703
  8. ACTISKENAN [Concomitant]
     Indication: BACK PAIN
     Route: 048
     Dates: start: 20130703
  9. DAFALGAN [Concomitant]
     Route: 048
     Dates: start: 20130703
  10. GDC-0941 (PI3K INHIBITOR) [Suspect]
     Indication: NON-SMALL CELL LUNG CANCER RECURRENT
     Dosage: LAST DOSE PRIOR TO SAE: 09/JUL/2013
     Route: 048
     Dates: start: 20130123

REACTIONS (1)
  - Phlebitis [Not Recovered/Not Resolved]
